FAERS Safety Report 12593557 (Version 1)
Quarter: 2016Q3

REPORT INFORMATION
  Report Type: Spontaneous
  Country: US (occurrence: US)
  Receive Date: 20160726
  Receipt Date: 20160726
  Transmission Date: 20161109
  Serious: No
  Sender: FDA-Public Use
  Company Number: US-ABBVIE-15P-163-1481480-00

PATIENT
  Sex: Female

DRUGS (4)
  1. ARMOUR THYROID [Suspect]
     Active Substance: THYROID, PORCINE
     Indication: PRODUCT USED FOR UNKNOWN INDICATION
     Route: 065
  2. SYNTHROID [Suspect]
     Active Substance: LEVOTHYROXINE SODIUM
     Indication: PRODUCT USED FOR UNKNOWN INDICATION
     Route: 065
  3. LEVOTHYROXINE. [Suspect]
     Active Substance: LEVOTHYROXINE
     Indication: PRODUCT USED FOR UNKNOWN INDICATION
     Route: 065
  4. LEVOXYL [Suspect]
     Active Substance: LEVOTHYROXINE SODIUM
     Indication: PRODUCT USED FOR UNKNOWN INDICATION
     Route: 065

REACTIONS (12)
  - Hair texture abnormal [Unknown]
  - Feeling abnormal [Unknown]
  - Dry skin [Unknown]
  - Peripheral coldness [Unknown]
  - Drug ineffective [Unknown]
  - Hyperthyroidism [Unknown]
  - Alopecia [Unknown]
  - Fatigue [Unknown]
  - Sensation of blood flow [Unknown]
  - Blood pressure increased [Unknown]
  - Hypothyroidism [Unknown]
  - Heart rate increased [Unknown]
